FAERS Safety Report 4744696-3 (Version None)
Quarter: 2005Q3

REPORT INFORMATION
  Report Type: 
  Country: None (occurrence: None)
  Receive Date: 20050815
  Receipt Date: 20050801
  Transmission Date: 20060218
  Serious: Yes (Other)
  Sender: FDA-Public Use
  Company Number: CA-GILEAD-2005-0008604

PATIENT
  Age: 44 Year
  Sex: Male

DRUGS (5)
  1. VIREAD [Suspect]
     Indication: HIV INFECTION
     Route: 048
  2. KALETRA [Concomitant]
     Route: 048
  3. HEPTOVIR [Concomitant]
     Route: 048
  4. CARBAMAZEPINE [Concomitant]
  5. PHENYTOIN [Concomitant]

REACTIONS (1)
  - CONVULSION [None]
